FAERS Safety Report 4277276-7 (Version None)
Quarter: 2004Q1

REPORT INFORMATION
  Report Type: 
  Country: None (occurrence: None)
  Receive Date: 20040120
  Receipt Date: 20040108
  Transmission Date: 20041129
  Serious: Yes (Hospitalization, Other)
  Sender: FDA-Public Use
  Company Number: IE-JNJFOC-20040101500

PATIENT

DRUGS (3)
  1. ABCIXIMAB (ABCIXIMAB) INJECTION [Suspect]
     Indication: CORONARY ANGIOPLASTY
  2. HEPARIN [Suspect]
     Indication: CORONARY ANGIOPLASTY
  3. CLOPIDOGREL BISULFATE [Suspect]
     Indication: CORONARY ANGIOPLASTY

REACTIONS (5)
  - ARTERY DISSECTION [None]
  - INTRACARDIAC THROMBUS [None]
  - MYOCARDIAL INFARCTION [None]
  - POST PROCEDURAL COMPLICATION [None]
  - STENT OCCLUSION [None]
